FAERS Safety Report 10073964 (Version 1)
Quarter: 2014Q2

REPORT INFORMATION
  Report Type: Spontaneous
  Country: US (occurrence: US)
  Receive Date: 20140411
  Receipt Date: 20140411
  Transmission Date: 20141212
  Serious: Yes (Other)
  Sender: FDA-Public Use
  Company Number: US-SA-2013SA114251

PATIENT
  Age: 62 Year
  Sex: Female

DRUGS (1)
  1. ALLEGRA D [Suspect]
     Indication: SINUSITIS
     Route: 048
     Dates: end: 20131104

REACTIONS (1)
  - Blood pressure increased [Not Recovered/Not Resolved]
